FAERS Safety Report 10520669 (Version 1)
Quarter: 2014Q4

REPORT INFORMATION
  Report Type: Spontaneous
  Country: AU (occurrence: AU)
  Receive Date: 20141015
  Receipt Date: 20141015
  Transmission Date: 20150528
  Serious: Yes (Other)
  Sender: FDA-Public Use
  Company Number: PHHY2014AU122918

PATIENT
  Sex: Male

DRUGS (1)
  1. ONBREZ BREEZHALER [Suspect]
     Active Substance: INDACATEROL
     Indication: PRODUCT USED FOR UNKNOWN INDICATION
     Dosage: 300 UG, 8 TO 10 PUFF OF 300 MCG VER 12 HOURS.
     Route: 055

REACTIONS (4)
  - Tachycardia [Unknown]
  - Tremor [Unknown]
  - Accidental overdose [Unknown]
  - Palpitations [Unknown]
